FAERS Safety Report 14304760 (Version 1)
Quarter: 2017Q4

REPORT INFORMATION
  Report Type: Spontaneous
  Country: JP (occurrence: JP)
  Receive Date: 20171219
  Receipt Date: 20171219
  Transmission Date: 20180321
  Serious: Yes (Hospitalization)
  Sender: FDA-Public Use
  Company Number: JP-OTSUKA-009554

PATIENT
  Age: 64 Year
  Sex: Female

DRUGS (9)
  1. ABILIFY [Suspect]
     Active Substance: ARIPIPRAZOLE
     Dosage: 24 MG, QD
     Route: 048
     Dates: start: 20100406, end: 20100407
  2. SELENICA-R [Concomitant]
     Active Substance: VALPROATE SODIUM
     Dosage: 400 MG, BID
     Route: 048
     Dates: end: 20100418
  3. ABILIFY [Suspect]
     Active Substance: ARIPIPRAZOLE
     Dosage: 20 MG, QD
     Route: 048
     Dates: start: 20100401, end: 20100405
  4. ABILIFY [Suspect]
     Active Substance: ARIPIPRAZOLE
     Dosage: 30 MG, QD
     Route: 048
     Dates: start: 20100408, end: 20100418
  5. FLUNITRAZEPAM [Concomitant]
     Active Substance: FLUNITRAZEPAM
     Dosage: 2 MG, QD
     Route: 048
     Dates: end: 20100418
  6. FLUNITRAZEPAM [Concomitant]
     Active Substance: FLUNITRAZEPAM
     Dosage: DF=TABS
     Dates: end: 20100418
  7. ABILIFY [Suspect]
     Active Substance: ARIPIPRAZOLE
     Dosage: 18 MG, QD
     Route: 048
     Dates: end: 20100331
  8. DEPAKENE-R JPN [Concomitant]
     Dosage: 1000 MG, QD
     Route: 048
     Dates: end: 20100418
  9. YOUPIS [Concomitant]
     Dosage: 5 MG, BID
     Route: 048
     Dates: end: 20100418

REACTIONS (2)
  - Pyrexia [Not Recovered/Not Resolved]
  - Altered state of consciousness [Not Recovered/Not Resolved]

NARRATIVE: CASE EVENT DATE: 20100417
